FAERS Safety Report 9240769 (Version 1)
Quarter: 2013Q1

REPORT INFORMATION
  Report Type: Spontaneous
  Country: US (occurrence: None)
  Receive Date: 20121120
  Receipt Date: 20121120
  Transmission Date: 20140127
  Serious: No
  Sender: FDA-Public Use
  Company Number: 1000037643

PATIENT
  Age: 53 Year
  Sex: Female
  Weight: 60 kg

DRUGS (19)
  1. VIIBRYD [Suspect]
     Dates: start: 20120524
  2. LISINOPRIL (LISINOPRIL) [Concomitant]
  3. TRAMADOL HCL (TRAMADOL HYDROCHLORIDE) [Concomitant]
  4. XANAX (ALPRAZOLAM) [Concomitant]
  5. ASPIRIN (ACETYLSALICYLIC ACID) [Concomitant]
  6. NITROSTAT (GLYCERYL TRINITRATE) [Concomitant]
  7. VYTORIN (EZETIMIBE, SIMVASTATIN) [Concomitant]
  8. CALTRATE PLUS (CALCIUM CARBONATE, VITAMIKN D, MINERAL) [Concomitant]
  9. RESTORIL (TEMAZEPAM) [Concomitant]
  10. NEURONTIN (GABAPENTIN) [Concomitant]
  11. ROBAXIN (METHOCARBAMOL) [Concomitant]
  12. VICODIN (HYDROCODONE, ACETAMINOPHEN) [Concomitant]
  13. PLAVIX (CLOPIDOGREL  BISULFATE) [Concomitant]
  14. FISH OIL (OMEA -3 FATTY ACIDS) [Concomitant]
  15. GARLIC TABS (GARLIC) [Concomitant]
  16. VITAMIN B12 (CYANOCOBALAMIN) [Concomitant]
  17. MOBIC (MELOXICAM) [Concomitant]
  18. METANX (CALCIUM MEFOLINATE, PYRIDOXINE HYDROCHOLORIDE) [Concomitant]
  19. CHANTIX [Suspect]
     Indication: EX-TOBACCO USER
     Dosage: 2 MG (1 MG, 2 IN 1 D), ORAL
     Route: 048
     Dates: start: 20120524

REACTIONS (2)
  - Abdominal pain upper [None]
  - Flatulence [None]
